FAERS Safety Report 23813431 (Version 1)
Quarter: 2024Q2

REPORT INFORMATION
  Report Type: Other
  Country: DE (occurrence: DE)
  Receive Date: 20240503
  Receipt Date: 20240503
  Transmission Date: 20240716
  Serious: Yes (Death, Hospitalization, Other)
  Sender: FDA-Public Use
  Company Number: DE-EMA-DD-20240408-7482705-162716

PATIENT
  Age: 11 Year
  Sex: Male

DRUGS (10)
  1. METHOTREXATE [Suspect]
     Active Substance: METHOTREXATE
     Indication: Graft versus host disease
     Dosage: METHOTREXATE FOR PREVENTION OF GVHD AND PHOTOPHERESIS THERAPY
  2. FLUDARABINE [Suspect]
     Active Substance: FLUDARABINE PHOSPHATE
     Indication: Product used for unknown indication
     Dosage: RECEIVED CONDITIONING REGIMEN WITH FLUDARABINE, THIOTEPA, ANTITHYMOCYTE GLOBULIN
  3. METHYLPREDNISOLONE [Suspect]
     Active Substance: METHYLPREDNISOLONE
     Indication: Graft versus host disease
     Dosage: HE RECEIVED GVHD TREATMENT METHYLPREDNISOLONE, AND PHOTOPHERESIS THERAPY
  4. PREDNISOLONE [Suspect]
     Active Substance: PREDNISOLONE
     Indication: Graft versus host disease
     Dosage: HE RECEIVED GVHD TREATMENT WITH PREDNISOLONE,AND PHOTOPHERESIS THERAPY
  5. INFLIXIMAB [Suspect]
     Active Substance: INFLIXIMAB
     Indication: Graft versus host disease
     Dosage: HE RECEIVED GVHD TREATMENT WITH INFLIXIMAB AND PHOTOPHERESIS THERAPY
  6. THYMOCYTE IMMUNE GLOBULIN NOS [Suspect]
     Active Substance: THYMOCYTE IMMUNE GLOBULIN NOS
     Indication: Product used for unknown indication
     Dosage: HE RECEIVED CONDITIONING REGIMEN WITH FLUDARABINE, THIOTEPA, ANTITHYMOCYTE GLOBULIN
  7. THIOTEPA [Suspect]
     Active Substance: THIOTEPA
     Indication: Product used for unknown indication
     Dosage: HE RECEIVED CONDITIONING REGIMEN WITH FLUDARABINE, THIOTEPA, ANTITHYMOCYTE GLOBULIN
  8. TACROLIMUS [Suspect]
     Active Substance: TACROLIMUS
     Indication: Graft versus host disease
     Dosage: HE RECEIVED GVHD TREATMENT WITH TACROLIMUS AND PHOTOPHERESIS THERAPY
  9. CYCLOSPORINE [Suspect]
     Active Substance: CYCLOSPORINE
     Indication: Prophylaxis
     Dosage: GVHD TREATMENT WITH CICLOSPORIN AND PHOTOPHERESIS THERAPY
  10. RUXOLITINIB [Suspect]
     Active Substance: RUXOLITINIB
     Indication: Graft versus host disease
     Dosage: GVHD TREATMENT WITH RUXOLITINIB AND PHOTOPHERESIS THERAPY

REACTIONS (5)
  - Oesophagitis [Fatal]
  - Osteonecrosis [Fatal]
  - Haemoptysis [Fatal]
  - Respiratory failure [Fatal]
  - Urethral polyp [Fatal]
